FAERS Safety Report 4946164-2 (Version None)
Quarter: 2006Q1

REPORT INFORMATION
  Report Type: 
  Country: None (occurrence: None)
  Receive Date: 20060118
  Receipt Date: 20050706
  Transmission Date: 20060701
  Serious: Yes (Death, Hospitalization)
  Sender: FDA-Public Use
  Company Number: US-JNJFOC-20050603611

PATIENT
  Age: 72 Year
  Sex: Female
  Weight: 58.514 kg

DRUGS (5)
  1. DOXIL [Suspect]
     Indication: OVARIAN CANCER
     Dosage: 65 MG, INTRAVENOUS
     Route: 042
     Dates: start: 20050208, end: 20050308
  2. DOXIL [Suspect]
  3. DOXIL [Suspect]
  4. PERINDOPRIL (PERINDOPRIL) [Concomitant]
  5. MVI (MULTIVITAMINS) [Concomitant]

REACTIONS (6)
  - BLOOD BILIRUBIN INCREASED [None]
  - JAUNDICE [None]
  - MALIGNANT NEOPLASM PROGRESSION [None]
  - OVARIAN CANCER [None]
  - PYREXIA [None]
  - TRANSAMINASES INCREASED [None]
